FAERS Safety Report 24022578 (Version 3)
Quarter: 2024Q3

REPORT INFORMATION
  Report Type: Spontaneous
  Country: IL (occurrence: IL)
  Receive Date: 20240627
  Receipt Date: 20240710
  Transmission Date: 20241017
  Serious: No
  Sender: ROCHE
  Company Number: IL-ROCHE-3535594

PATIENT
  Age: 68 Year
  Sex: Male

DRUGS (8)
  1. ROZLYTREK [Suspect]
     Active Substance: ENTRECTINIB
     Indication: Thyroid cancer
     Route: 065
  2. ROZLYTREK [Suspect]
     Active Substance: ENTRECTINIB
     Route: 065
  3. ROZLYTREK [Suspect]
     Active Substance: ENTRECTINIB
     Route: 065
  4. CALCIUM [Concomitant]
     Active Substance: CALCIUM
  5. ERGOCALCIFEROL [Concomitant]
     Active Substance: ERGOCALCIFEROL
  6. GILEX [Concomitant]
  7. VENLAFAXINE HYDROCHLORIDE [Concomitant]
     Active Substance: VENLAFAXINE HYDROCHLORIDE
  8. EUTHYROX [Concomitant]
     Active Substance: LEVOTHYROXINE SODIUM

REACTIONS (3)
  - Muscle spasms [Unknown]
  - Hypocalcaemia [Unknown]
  - Feeling hot [Unknown]
